FAERS Safety Report 6771904-X (Version None)
Quarter: 2010Q2

REPORT INFORMATION
  Report Type: 
  Country: None (occurrence: None)
  Receive Date: 20100616
  Receipt Date: 20100128
  Transmission Date: 20101027
  Serious: No
  Sender: FDA-Public Use
  Company Number: US-ASTRAZENECA-2010SE03984

PATIENT
  Age: 79 Year
  Sex: Male
  Weight: 66.7 kg

DRUGS (8)
  1. ENTOCORT EC [Suspect]
     Indication: DIARRHOEA
     Route: 048
  2. ENSURE [Concomitant]
  3. TRAVATAN EYE DROP [Concomitant]
     Indication: GLAUCOMA
  4. ATENOLOL [Concomitant]
  5. RANITIDINE [Concomitant]
  6. HYDROCHLOROTHIAZIDE [Concomitant]
  7. LIPITOR [Concomitant]
  8. CIPROFLOXACIN [Concomitant]
     Indication: URINARY TRACT INFECTION

REACTIONS (3)
  - ERYTHEMA OF EYELID [None]
  - EYE IRRITATION [None]
  - WEIGHT DECREASED [None]
